FAERS Safety Report 11160144 (Version 1)
Quarter: 2015Q2

REPORT INFORMATION
  Report Type: Spontaneous
  Country: US (occurrence: US)
  Receive Date: 20150603
  Receipt Date: 20150603
  Transmission Date: 20150821
  Serious: Yes (Other)
  Sender: FDA-Public Use
  Company Number: PHHY2015US066047

PATIENT
  Age: 67 Year
  Sex: Male

DRUGS (2)
  1. CAFFEINE CITRATE,ERGOTAMINE TARTRATE [Suspect]
     Active Substance: CAFFEINE CITRATE\ERGOTAMINE TARTRATE
     Indication: MIGRAINE
     Route: 065
  2. PENTOBARBITAL [Concomitant]
     Active Substance: PENTOBARBITAL
     Indication: MIGRAINE WITH AURA
     Route: 065

REACTIONS (6)
  - Intentional product misuse [Unknown]
  - Headache [Recovering/Resolving]
  - Cerebral atrophy [Unknown]
  - Cerebral infarction [Unknown]
  - Cerebral artery occlusion [Unknown]
  - Dysphoria [Recovering/Resolving]
